FAERS Safety Report 14902438 (Version 3)
Quarter: 2018Q2

REPORT INFORMATION
  Report Type: Report from Study
  Country: US (occurrence: US)
  Receive Date: 20180516
  Receipt Date: 20180618
  Transmission Date: 20180711
  Serious: Yes (Hospitalization)
  Sender: FDA-Public Use
  Company Number: US-OTSUKA-2018_012239

PATIENT
  Sex: Male

DRUGS (1)
  1. ARIPIPRAZOLE. [Suspect]
     Active Substance: ARIPIPRAZOLE
     Indication: SCHIZOPHRENIA
     Dosage: 400 MG, QM
     Route: 065
     Dates: start: 20170309

REACTIONS (2)
  - Mental disorder [Unknown]
  - Confusional state [Unknown]
